FAERS Safety Report 7795837-5 (Version None)
Quarter: 2011Q4

REPORT INFORMATION
  Report Type: 
  Country: None (occurrence: None)
  Receive Date: 20111004
  Receipt Date: 20110929
  Transmission Date: 20120403
  Serious: Yes (Death, Other)
  Sender: FDA-Public Use
  Company Number: PHHY2011JP87215

PATIENT

DRUGS (2)
  1. CISPLATIN [Suspect]
     Indication: SQUAMOUS CELL CARCINOMA
     Dosage: 60 - 70 MG/M2, UNK
     Route: 048
  2. FLUOROURACIL [Suspect]
     Indication: SQUAMOUS CELL CARCINOMA
     Dosage: 600- 700 MG/M2, UNK
     Route: 048

REACTIONS (4)
  - METASTASES TO LIVER [None]
  - BONE MARROW FAILURE [None]
  - MUCOSAL INFLAMMATION [None]
  - NAUSEA [None]
